FAERS Safety Report 23570112 (Version 1)
Quarter: 2024Q1

REPORT INFORMATION
  Report Type: Report from Study
  Country: RU (occurrence: RU)
  Receive Date: 20240227
  Receipt Date: 20240227
  Transmission Date: 20240409
  Serious: Yes (Life-Threatening, Hospitalization)
  Sender: FDA-Public Use
  Company Number: RU-002147023-NVSC2024RU040199

PATIENT
  Age: 76 Year
  Sex: Female
  Weight: 67 kg

DRUGS (1)
  1. KISQALI [Suspect]
     Active Substance: RIBOCICLIB
     Indication: Breast cancer
     Dosage: 400 MG, QD (PER DAY FOR 21 DAYS WITH 7-DAY BREAKS)
     Route: 048
     Dates: start: 20230802, end: 20240206

REACTIONS (1)
  - Atrial fibrillation [Recovered/Resolved]

NARRATIVE: CASE EVENT DATE: 20240214
